FAERS Safety Report 18134572 (Version 2)
Quarter: 2020Q3

REPORT INFORMATION
  Report Type: Spontaneous
  Country: US (occurrence: US)
  Receive Date: 20200811
  Receipt Date: 20200908
  Transmission Date: 20201103
  Serious: Yes (Other)
  Sender: FDA-Public Use
  Company Number: US-AMGEN-USASP2020126463

PATIENT
  Age: 55 Year
  Sex: Female

DRUGS (24)
  1. DULOXETINE. [Concomitant]
     Active Substance: DULOXETINE
  2. LEVOTHYROXIN [Concomitant]
     Active Substance: LEVOTHYROXINE
  3. MONTELUKAST [Concomitant]
     Active Substance: MONTELUKAST SODIUM
  4. SULFASALAZINE. [Concomitant]
     Active Substance: SULFASALAZINE
  5. OTEZLA [Suspect]
     Active Substance: APREMILAST
     Indication: PSORIATIC ARTHROPATHY
     Dosage: 30 MILLIGRAM, BID
     Route: 048
     Dates: start: 20200416
  6. LEFLUNOMIDE. [Concomitant]
     Active Substance: LEFLUNOMIDE
  7. VALSARTAN HCTZ [Concomitant]
     Active Substance: HYDROCHLOROTHIAZIDE\VALSARTAN
  8. KLOR?CON [Concomitant]
     Active Substance: POTASSIUM CHLORIDE
  9. ALBUTEROL HFA [Concomitant]
     Active Substance: ALBUTEROL SULFATE
  10. CELECOXIB. [Concomitant]
     Active Substance: CELECOXIB
  11. FLUTICASONE. [Concomitant]
     Active Substance: FLUTICASONE
  12. HYDROXYCHLOROQUINE [Concomitant]
     Active Substance: HYDROXYCHLOROQUINE
  13. FUROSEMIDE. [Concomitant]
     Active Substance: FUROSEMIDE
  14. TIZANIDINE. [Concomitant]
     Active Substance: TIZANIDINE
  15. OTEZLA [Suspect]
     Active Substance: APREMILAST
     Dosage: 30 MILLIGRAM, BID
     Route: 048
     Dates: start: 20200416
  16. POTASSIUM CHLORIDE. [Concomitant]
     Active Substance: POTASSIUM CHLORIDE
     Dosage: UNK (POWDER)
  17. ADVAIR DISKU AER [Concomitant]
  18. CLOBETASOL [Concomitant]
     Active Substance: CLOBETASOL
  19. HYDROCORT [HYDROCORTISONE ACETATE] [Concomitant]
  20. MORPHINE SULPHATE [Concomitant]
     Active Substance: MORPHINE SULFATE
  21. INCRUSE ELLIPTA [Concomitant]
     Active Substance: UMECLIDINIUM BROMIDE
  22. NEURONTIN [Concomitant]
     Active Substance: GABAPENTIN
  23. OXYCOD [OXYCODONE HYDROCHLORIDE] [Concomitant]
  24. PERCOCET [OXYCODONE HYDROCHLORIDE;OXYCODONE TEREPHTHALATE;PARACETAMOL] [Concomitant]
     Active Substance: ACETAMINOPHEN\OXYCODONE HYDROCHLORIDE\OXYCODONE TEREPHTHALATE

REACTIONS (3)
  - Psoriatic arthropathy [Not Recovered/Not Resolved]
  - Product dose omission issue [Unknown]
  - Tooth extraction [Not Recovered/Not Resolved]

NARRATIVE: CASE EVENT DATE: 2020
